FAERS Safety Report 15819806 (Version 1)
Quarter: 2019Q1

REPORT INFORMATION
  Report Type: Spontaneous
  Country: US (occurrence: US)
  Receive Date: 20190114
  Receipt Date: 20190114
  Transmission Date: 20190417
  Serious: Yes (Death)
  Sender: FDA-Public Use
  Company Number: US-MICRO LABS LIMITED-ML2019-00018

PATIENT
  Age: 60 Year
  Sex: Female

DRUGS (5)
  1. NORSERTRALINE [Suspect]
     Active Substance: DESMETHYLSERTRALINE
  2. DIPHENHYDRAMINE HYDROCHLORIDE. [Suspect]
     Active Substance: DIPHENHYDRAMINE HYDROCHLORIDE
  3. BUPROPION. [Suspect]
     Active Substance: BUPROPION
     Route: 048
  4. LAMOTRIGINE. [Suspect]
     Active Substance: LAMOTRIGINE
  5. SERTRALINE [Suspect]
     Active Substance: SERTRALINE HYDROCHLORIDE

REACTIONS (1)
  - Toxicity to various agents [Fatal]
